FAERS Safety Report 12375335 (Version 1)
Quarter: 2016Q2

REPORT INFORMATION
  Report Type: Spontaneous
  Country: US (occurrence: None)
  Receive Date: 20160516
  Receipt Date: 20160516
  Transmission Date: 20160815
  Serious: Yes (Other)
  Sender: FDA-Public Use
  Company Number: None

PATIENT
  Age: 47 Year
  Sex: Male
  Weight: 79.38 kg

DRUGS (2)
  1. COLESTID [Concomitant]
     Active Substance: COLESTIPOL HYDROCHLORIDE
  2. LOVAZA [Suspect]
     Active Substance: OMEGA-3-ACID ETHYL ESTERS
     Indication: HYPERLIPIDAEMIA
     Route: 048
     Dates: start: 20141001

REACTIONS (2)
  - Poor quality drug administered [None]
  - Diarrhoea [None]

NARRATIVE: CASE EVENT DATE: 20160515
